FAERS Safety Report 14381295 (Version 1)
Quarter: 2018Q1

REPORT INFORMATION
  Report Type: Spontaneous
  Country: US (occurrence: US)
  Receive Date: 20180111
  Receipt Date: 20180111
  Transmission Date: 20180509
  Serious: No
  Sender: FDA-Public Use
  Company Number: None

PATIENT
  Age: 76 Year
  Sex: Female

DRUGS (1)
  1. TACROLIMUS CAP 1MG ACCORD HEALTHCARE [Suspect]
     Active Substance: TACROLIMUS

REACTIONS (1)
  - Streptococcal infection [None]

NARRATIVE: CASE EVENT DATE: 20171215
